FAERS Safety Report 5213801-7 (Version None)
Quarter: 2007Q1

REPORT INFORMATION
  Report Type: 
  Country: None (occurrence: None)
  Receive Date: 20070119
  Receipt Date: 20061130
  Transmission Date: 20070707
  Serious: Yes (Other)
  Sender: FDA-Public Use
  Company Number: US-PFIZER INC-2006029575

PATIENT
  Sex: Male

DRUGS (3)
  1. BEXTRA [Suspect]
     Indication: BACK PAIN
  2. HYDROCHLOROTHIAZIDE [Concomitant]
     Dates: start: 19990616
  3. ATENOLOL [Concomitant]
     Dates: start: 20040204

REACTIONS (1)
  - STEVENS-JOHNSON SYNDROME [None]
